FAERS Safety Report 10672136 (Version 3)
Quarter: 2015Q1

REPORT INFORMATION
  Report Type: Spontaneous
  Country: US (occurrence: US)
  Receive Date: 20141223
  Receipt Date: 20150324
  Transmission Date: 20150720
  Serious: No
  Sender: FDA-Public Use
  Company Number: US-ASTRAZENECA-2014SE97867

PATIENT
  Age: 74 Year
  Sex: Male
  Weight: 79 kg

DRUGS (12)
  1. CLOPIDOGREL [Concomitant]
     Active Substance: CLOPIDOGREL BISULFATE
     Indication: STENT PLACEMENT
  2. PRAVASTATIN [Concomitant]
     Active Substance: PRAVASTATIN\PRAVASTATIN SODIUM
     Indication: BLOOD CHOLESTEROL ABNORMAL
  3. TADALAFIL [Concomitant]
     Active Substance: TADALAFIL
     Indication: BENIGN PROSTATIC HYPERPLASIA
  4. COENZYME Q10 [Concomitant]
     Active Substance: UBIDECARENONE
     Indication: SUPPLEMENTATION THERAPY
  5. NEXIUM 24HR [Suspect]
     Active Substance: ESOMEPRAZOLE MAGNESIUM
     Indication: DYSPEPSIA
     Route: 048
     Dates: start: 20141116, end: 20141129
  6. LEVOTHYROXINE [Concomitant]
     Active Substance: LEVOTHYROXINE
     Indication: THYROID DISORDER
  7. TADALAFIL [Concomitant]
     Active Substance: TADALAFIL
     Indication: POLLAKIURIA
  8. AMLODIPINE [Concomitant]
     Active Substance: AMLODIPINE BESYLATE
     Indication: BLOOD PRESSURE ABNORMAL
  9. CENTRUM SILVER [Concomitant]
     Active Substance: VITAMINS
     Indication: SUPPLEMENTATION THERAPY
  10. NEXIUM 24HR [Suspect]
     Active Substance: ESOMEPRAZOLE MAGNESIUM
     Indication: DYSPEPSIA
     Route: 048
     Dates: start: 201411, end: 201412
  11. ACETYLSALICYLIC ACID [Concomitant]
     Active Substance: ASPIRIN
     Indication: ANTICOAGULANT THERAPY
  12. CALCIUM [Concomitant]
     Active Substance: CALCIUM
     Indication: HIP ARTHROPLASTY

REACTIONS (2)
  - Dyspepsia [Not Recovered/Not Resolved]
  - Drug ineffective [Recovered/Resolved]

NARRATIVE: CASE EVENT DATE: 20141206
